FAERS Safety Report 7231335-5 (Version None)
Quarter: 2011Q1

REPORT INFORMATION
  Report Type: 
  Country: None (occurrence: None)
  Receive Date: 20110107
  Receipt Date: 20101224
  Transmission Date: 20110831
  Serious: Yes (Hospitalization)
  Sender: FDA-Public Use
  Company Number: IT-2010-2682

PATIENT
  Age: 63 Year
  Sex: Female

DRUGS (7)
  1. NAVELBINE [Suspect]
     Indication: RENAL FAILURE ACUTE
     Dosage: 40 MG IV
     Route: 042
     Dates: start: 20101103, end: 20101103
  2. CISPLATIN [Suspect]
     Indication: RENAL FAILURE ACUTE
     Dosage: 330 MG IV
     Route: 042
     Dates: start: 20101103, end: 20101103
  3. TENORMIN [Concomitant]
  4. DECADRON FOSFATO [Concomitant]
  5. EMEND [Concomitant]
  6. ADALAT [Concomitant]
  7. ALOXI [Concomitant]

REACTIONS (1)
  - RENAL FAILURE ACUTE [None]
